FAERS Safety Report 8182355-8 (Version None)
Quarter: 2012Q1

REPORT INFORMATION
  Report Type: 
  Country: None (occurrence: None)
  Receive Date: 20120303
  Receipt Date: 20120220
  Transmission Date: 20120608
  Serious: Yes (Death, Other)
  Sender: FDA-Public Use
  Company Number: RO-AMGEN-ROUSP2012009987

PATIENT
  Age: 73 Year
  Sex: Female
  Weight: 60 kg

DRUGS (6)
  1. PREDUCTAL                          /00489601/ [Concomitant]
     Dosage: 35 MG, 2X/DAY
  2. PREDUCTAL                          /00489601/ [Concomitant]
     Indication: ISCHAEMIC CARDIOMYOPATHY
     Dosage: 35 MG, 2X/DAY
  3. NITROGLICERINA [Concomitant]
     Indication: ISCHAEMIC CARDIOMYOPATHY
     Dosage: UNK
  4. NITROGLYCERIN [Concomitant]
     Indication: ISCHAEMIC CARDIOMYOPATHY
     Dosage: UNK
  5. ENBREL [Suspect]
     Indication: RHEUMATOID ARTHRITIS
     Dosage: 50 MG, QWK
     Route: 058
     Dates: start: 20110101, end: 20111225
  6. IMURAN [Concomitant]
     Indication: RHEUMATOID ARTHRITIS
     Dosage: 50 MG, 2X/DAY
     Dates: start: 20100808, end: 20111225

REACTIONS (2)
  - CARDIO-RESPIRATORY ARREST [None]
  - ATRIAL FIBRILLATION [None]
